FAERS Safety Report 10577384 (Version 1)
Quarter: 2014Q4

REPORT INFORMATION
  Report Type: Spontaneous
  Country: ES (occurrence: ES)
  Receive Date: 20141111
  Receipt Date: 20141111
  Transmission Date: 20150529
  Serious: Yes (Other)
  Sender: FDA-Public Use
  Company Number: ES-ASTRAZENECA-2014SE84159

PATIENT
  Age: 43 Year
  Sex: Male

DRUGS (2)
  1. TERBASMIN TURBUHALER [Suspect]
     Active Substance: TERBUTALINE SULFATE
     Indication: SARCOIDOSIS
     Dosage: 500 MICROGRAMS
     Route: 055
     Dates: start: 20080422
  2. SYMBICORT [Suspect]
     Active Substance: BUDESONIDE\FORMOTEROL FUMARATE DIHYDRATE
     Indication: SARCOIDOSIS
     Dosage: 80/4.5 MCG, UNKNOWN
     Route: 055
     Dates: start: 20080422

REACTIONS (1)
  - Osteoporosis [Not Recovered/Not Resolved]

NARRATIVE: CASE EVENT DATE: 2011
